FAERS Safety Report 21455419 (Version 2)
Quarter: 2022Q4

REPORT INFORMATION
  Report Type: Spontaneous
  Country: CH (occurrence: CH)
  Receive Date: 20221014
  Receipt Date: 20221019
  Transmission Date: 20230113
  Serious: Yes (Hospitalization, Other)
  Sender: FDA-Public Use
  Company Number: CH-009507513-2210CHE001380

PATIENT
  Age: 46 Year
  Sex: Female

DRUGS (2)
  1. IVERMECTIN [Suspect]
     Active Substance: IVERMECTIN
     Indication: Acarodermatitis
     Dosage: 200 MICROGRAM PER KILOGRAM, EVERY 2 WEEKS
     Route: 048
  2. IVERMECTIN [Suspect]
     Active Substance: IVERMECTIN
     Dosage: 200 MICROGRAM PER KILOGRAM, EVERY 2 WEEKS
     Route: 048

REACTIONS (3)
  - Mazzotti reaction [Recovered/Resolved]
  - Polyarthritis [Recovered/Resolved]
  - Product use in unapproved indication [Unknown]
